FAERS Safety Report 8095184-0 (Version None)
Quarter: 2012Q1

REPORT INFORMATION
  Report Type: 
  Country: None (occurrence: None)
  Receive Date: 20120131
  Receipt Date: 20120120
  Transmission Date: 20120608
  Serious: Yes (Hospitalization, Other)
  Sender: FDA-Public Use
  Company Number: US-BAXTER-2011BH037101

PATIENT
  Sex: Male

DRUGS (1)
  1. DIANEAL [Suspect]
     Indication: PERITONEAL DIALYSIS
     Route: 033
     Dates: end: 20120116

REACTIONS (6)
  - DIABETIC VASCULAR DISORDER [None]
  - WRONG DRUG ADMINISTERED [None]
  - MALAISE [None]
  - SEPSIS [None]
  - PAIN IN EXTREMITY [None]
  - TOE AMPUTATION [None]
